FAERS Safety Report 19878537 (Version 2)
Quarter: 2021Q4

REPORT INFORMATION
  Report Type: Spontaneous
  Country: IN (occurrence: IN)
  Receive Date: 20210924
  Receipt Date: 20211004
  Transmission Date: 20220303
  Serious: Yes (Hospitalization, Other)
  Sender: FDA-Public Use
  Company Number: IN-MACLEODS PHARMACEUTICALS US LTD-MAC2021032754

PATIENT

DRUGS (2)
  1. CLOBETASOL [Suspect]
     Active Substance: CLOBETASOL
     Indication: Pruritus
     Dosage: UNK, BID; LOTION; TWICE A DAY CONTINUOUSLY FOR A PERIOD OF 2 MONTHS (15-20 TUBES OF 15 G EACH CORRES
     Route: 061
     Dates: start: 20201220, end: 20210223
  2. CLOBETASOL [Suspect]
     Active Substance: CLOBETASOL
     Indication: Skin lesion

REACTIONS (8)
  - Dermatophytosis [Unknown]
  - Osteopenia [Unknown]
  - Dermatitis exfoliative generalised [Recovered/Resolved]
  - Seizure [Unknown]
  - Body tinea [Recovered/Resolved]
  - Cushing^s syndrome [Unknown]
  - Hypothalamic pituitary adrenal axis suppression [Not Recovered/Not Resolved]
  - Drug abuse [Unknown]

NARRATIVE: CASE EVENT DATE: 20201201
